FAERS Safety Report 18749341 (Version 5)
Quarter: 2021Q2

REPORT INFORMATION
  Report Type: Report from Study
  Country: US (occurrence: US)
  Receive Date: 20210116
  Receipt Date: 20210607
  Transmission Date: 20210717
  Serious: Yes (Other)
  Sender: FDA-Public Use
  Company Number: NVSC2021US008839

PATIENT
  Sex: Male

DRUGS (2)
  1. TABRECTA [Suspect]
     Active Substance: CAPMATINIB
     Indication: NON-SMALL CELL LUNG CANCER
     Dosage: 400 MG, BID
     Route: 048
  2. TABRECTA [Suspect]
     Active Substance: CAPMATINIB
     Dosage: 300 MG, BID
     Route: 048

REACTIONS (4)
  - Peripheral swelling [Unknown]
  - Deep vein thrombosis [Unknown]
  - Blood bilirubin increased [Unknown]
  - Photosensitivity reaction [Unknown]
